FAERS Safety Report 24274167 (Version 2)
Quarter: 2024Q4

REPORT INFORMATION
  Report Type: Spontaneous
  Country: US (occurrence: US)
  Receive Date: 20240902
  Receipt Date: 20241003
  Transmission Date: 20250115
  Serious: No
  Sender: ROCHE
  Company Number: US-ROCHE-10000070258

PATIENT
  Sex: Female

DRUGS (1)
  1. ACTEMRA [Suspect]
     Active Substance: TOCILIZUMAB
     Indication: Rheumatoid arthritis
     Dosage: ONGOING
     Route: 058
     Dates: start: 202406

REACTIONS (5)
  - Drug ineffective [Unknown]
  - Swelling face [Unknown]
  - Periorbital swelling [Unknown]
  - Alopecia [Unknown]
  - Pain in extremity [Unknown]
